FAERS Safety Report 11847529 (Version 1)
Quarter: 2015Q4

REPORT INFORMATION
  Report Type: Spontaneous
  Country: JP (occurrence: JP)
  Receive Date: 20151217
  Receipt Date: 20151217
  Transmission Date: 20160305
  Serious: Yes (Death)
  Sender: FDA-Public Use
  Company Number: PHJP1900JP000441

PATIENT
  Age: 66 Year
  Sex: Female

DRUGS (2)
  1. VOLTAREN [Suspect]
     Active Substance: DICLOFENAC SODIUM
     Indication: RHEUMATOID ARTHRITIS
     Dosage: 150 MG, UNK
     Route: 048
     Dates: start: 197705, end: 197707
  2. DIGOXIN. [Concomitant]
     Active Substance: DIGOXIN
     Indication: CARDIAC FAILURE
     Dosage: 0.25 MG, UNK
     Route: 048
     Dates: start: 19760731

REACTIONS (10)
  - Eosinophil count increased [Unknown]
  - Red blood cell count decreased [Unknown]
  - Blood bilirubin increased [Unknown]
  - Neutrophil count decreased [Unknown]
  - Acute kidney injury [Fatal]
  - White blood cell count decreased [Unknown]
  - Hepatitis acute [Fatal]
  - Jaundice [Fatal]
  - Band neutrophil count increased [Unknown]
  - Haemoglobin decreased [Unknown]
